FAERS Safety Report 7283454-5 (Version None)
Quarter: 2011Q1

REPORT INFORMATION
  Report Type: 
  Country: None (occurrence: None)
  Receive Date: 20110204
  Receipt Date: 20110204
  Transmission Date: 20110831
  Serious: Yes (Hospitalization)
  Sender: FDA-Public Use
  Company Number: None

PATIENT
  Sex: Female
  Weight: 58.9676 kg

DRUGS (1)
  1. BACTRIM [Suspect]
     Indication: INFECTION
     Dosage: 2X/DAY ORAL
     Route: 048
     Dates: start: 20110102, end: 20110107

REACTIONS (7)
  - PRURITUS [None]
  - MYALGIA [None]
  - SKIN BURNING SENSATION [None]
  - PAIN [None]
  - HEADACHE [None]
  - ARTHRALGIA [None]
  - PAIN OF SKIN [None]
